FAERS Safety Report 8451453-3 (Version None)
Quarter: 2012Q2

REPORT INFORMATION
  Report Type: 
  Country: None (occurrence: None)
  Receive Date: 20120620
  Receipt Date: 20120301
  Transmission Date: 20120825
  Serious: No
  Sender: FDA-Public Use
  Company Number: US-VERTEX PHARMACEUTICALS INC.-AE-2012-003029

PATIENT
  Sex: Female
  Weight: 82.174 kg

DRUGS (4)
  1. BENADRYL [Concomitant]
     Route: 048
  2. COPEGUS [Concomitant]
     Indication: HEPATITIS C
     Route: 048
     Dates: start: 20120207
  3. INCIVEK [Suspect]
     Indication: HEPATITIS C
     Route: 048
     Dates: start: 20120207
  4. PEGASYS [Concomitant]
     Indication: HEPATITIS C
     Route: 058
     Dates: start: 20120207

REACTIONS (4)
  - DYSPNOEA [None]
  - FATIGUE [None]
  - DIZZINESS [None]
  - ANAEMIA [None]
